FAERS Safety Report 6159673 (Version 2)
Quarter: 2016Q1

REPORT INFORMATION
  Report Type: Spontaneous
  Country: FR (occurrence: FR)
  Receive Date: 20060727
  Receipt Date: 20160127
  Transmission Date: 20160526
  Serious: Yes (Death, Congenital Anomaly, Other)
  Sender: FDA-Public Use
  Company Number: FR-BRISTOL-MYERS SQUIBB COMPANY-13454517

PATIENT
  Sex: Female

DRUGS (6)
  1. ADEPAL [Suspect]
     Active Substance: ETHINYL ESTRADIOL\LEVONORGESTREL
     Indication: PRODUCT USED FOR UNKNOWN INDICATION
     Dosage: UNK
     Route: 064
     Dates: end: 20030131
  2. LEVOTHYROX [Suspect]
     Active Substance: LEVOTHYROXINE
     Indication: PRODUCT USED FOR UNKNOWN INDICATION
     Dosage: UNK
     Route: 064
  3. CATAPRESSAN [Suspect]
     Active Substance: CLONIDINE
     Indication: PRODUCT USED FOR UNKNOWN INDICATION
     Dosage: UNK
     Route: 064
     Dates: start: 20030201
  4. FOSINOPRIL SODIUM,HYDROCHLOROTHIAZIDE [Suspect]
     Active Substance: FOSINOPRIL\HYDROCHLOROTHIAZIDE
     Indication: PRODUCT USED FOR UNKNOWN INDICATION
     Dosage: UNK
     Route: 064
     Dates: end: 20030131
  5. ALPRAZOLAM. [Suspect]
     Active Substance: ALPRAZOLAM
     Indication: PRODUCT USED FOR UNKNOWN INDICATION
     Dosage: UNK
     Route: 064
     Dates: end: 20030131
  6. TEMESTA [Suspect]
     Active Substance: LORAZEPAM
     Indication: PRODUCT USED FOR UNKNOWN INDICATION
     Dosage: UNK
     Route: 064
     Dates: start: 20030201

REACTIONS (12)
  - Pulmonary hypoplasia [Fatal]
  - Renal hypertrophy [Fatal]
  - Uterine disorder [Fatal]
  - Oligohydramnios [None]
  - Foetal exposure during pregnancy [Unknown]
  - Bladder disorder [Fatal]
  - Potter^s syndrome [Fatal]
  - Maternal drugs affecting foetus [None]
  - Congenital bladder anomaly [None]
  - Abortion induced [None]
  - Renal dysplasia [Fatal]
  - Congenital uterine anomaly [None]
